FAERS Safety Report 24581619 (Version 4)
Quarter: 2024Q4

REPORT INFORMATION
  Report Type: Report from Study
  Country: US (occurrence: US)
  Receive Date: 20241105
  Receipt Date: 20241227
  Transmission Date: 20250115
  Serious: Yes (Hospitalization)
  Sender: ALNYLAM PHARMACEUTICALS
  Company Number: US-ALNYLAM PHARMACEUTICALS, INC.-ALN-2024-006116

PATIENT

DRUGS (1)
  1. GIVLAARI [Suspect]
     Active Substance: GIVOSIRAN SODIUM
     Indication: Porphyria acute
     Dosage: 353.6 MILLIGRAM (189 MG/ML VIALS), MONTHLY (EVERY 30 DAYS)
     Route: 058
     Dates: start: 20231106, end: 20231106

REACTIONS (2)
  - Hospitalisation [Unknown]
  - Seizure [Unknown]

NARRATIVE: CASE EVENT DATE: 20241101
